FAERS Safety Report 5793591-X (Version None)
Quarter: 2008Q2

REPORT INFORMATION
  Report Type: 
  Country: None (occurrence: None)
  Receive Date: 20080627
  Receipt Date: 20080624
  Transmission Date: 20081010
  Serious: Yes (Other)
  Sender: FDA-Public Use
  Company Number: FR-RB-001873-08

PATIENT
  Age: 41 Year
  Sex: Male

DRUGS (5)
  1. SUBUTEX [Suspect]
     Indication: DRUG THERAPY
     Dosage: HE RECEIVED 24 MG BY SL AND A PART OF TREATMENT BY IV ROUTE.
     Dates: start: 19960101
  2. SUBUTEX [Suspect]
     Dosage: UNKNOWN DOSING INFORMATION.
     Route: 065
  3. VALIUM [Concomitant]
     Indication: DRUG USE FOR UNKNOWN INDICATION
     Dosage: UNKNOWN DOSING INFORMATION.
  4. CLONAZEPAM [Concomitant]
     Indication: DRUG USE FOR UNKNOWN INDICATION
     Dosage: UNKNOWN DOSING INFORMATION.
  5. NOZINAN [Concomitant]
     Indication: DRUG USE FOR UNKNOWN INDICATION
     Dosage: UNKNOWN DOSING INFORMATION.

REACTIONS (4)
  - INCORRECT ROUTE OF DRUG ADMINISTRATION [None]
  - INJECTION SITE ABSCESS [None]
  - SKIN LESION [None]
  - SUBSTANCE ABUSE [None]
